FAERS Safety Report 6409832-1 (Version None)
Quarter: 2009Q4

REPORT INFORMATION
  Report Type: 
  Country: None (occurrence: None)
  Receive Date: 20091022
  Receipt Date: 20091015
  Transmission Date: 20100525
  Serious: Yes (Hospitalization)
  Sender: FDA-Public Use
  Company Number: ES-ABBOTT-09P-144-0595694-00

PATIENT
  Age: 34 Year
  Sex: Female
  Weight: 94 kg

DRUGS (3)
  1. HUMIRA [Suspect]
     Indication: PSORIASIS
     Route: 058
     Dates: start: 20090320, end: 20090709
  2. METHOTREXATE [Concomitant]
     Indication: PSORIASIS
     Dates: start: 19980101, end: 20090220
  3. CYCLOSPORINE [Concomitant]
     Indication: PSORIASIS
     Dates: start: 20000101

REACTIONS (1)
  - OPTIC NEURITIS [None]
